FAERS Safety Report 13650690 (Version 2)
Quarter: 2017Q3

REPORT INFORMATION
  Report Type: Spontaneous
  Country: US (occurrence: US)
  Receive Date: 20170614
  Receipt Date: 20170712
  Transmission Date: 20171127
  Serious: No
  Sender: FDA-Public Use
  Company Number: US-TRIS PHARMA, INC-2017TRISPO00092

PATIENT

DRUGS (5)
  1. SINGULAIR [Concomitant]
     Active Substance: MONTELUKAST SODIUM
     Indication: HYPERSENSITIVITY
     Dosage: 10 MG, QD (ONCE AT NIGHT), TAKING FOR 15 YEARS
     Route: 065
  2. METFORMIN [Concomitant]
     Active Substance: METFORMIN HYDROCHLORIDE
     Indication: DIABETES MELLITUS
     Dosage: 1000 MG, QD (ONCE A DAY), TAKING FOR ATLEAST 15 YEARS MAY BE 20 YEARS
     Route: 065
  3. LISINOPRIL. [Concomitant]
     Active Substance: LISINOPRIL
     Indication: BLOOD PRESSURE MEASUREMENT
     Dosage: 5 MG, QD (2 OR 3 YEARS) AND 10 MG
     Route: 065
  4. DEXTROMETHORPHAN POLISTIREX [Suspect]
     Active Substance: DEXTROMETHORPHAN HYDROBROMIDE
     Indication: COUGH
     Dosage: 10 ML, TOOK EVERY 2 OR 3 HOURS (THREE TIMES MAXIMUM) IN A 12 HOUR PERIOD
     Route: 065
     Dates: start: 201705, end: 201705
  5. HUMULIN REGULAR INSULIN PUMP [Concomitant]
     Indication: DIABETES MELLITUS
     Dosage: UNK (DOSE VARIES WHEN SHE TAKES HER BLOOD SUGAR)
     Route: 065
     Dates: start: 1998

REACTIONS (2)
  - Drug ineffective [Unknown]
  - Inappropriate schedule of drug administration [Unknown]

NARRATIVE: CASE EVENT DATE: 201705
